FAERS Safety Report 7032913-9 (Version None)
Quarter: 2010Q4

REPORT INFORMATION
  Report Type: 
  Country: None (occurrence: None)
  Receive Date: 20101004
  Receipt Date: 20100928
  Transmission Date: 20110411
  Serious: Yes (Death, Hospitalization)
  Sender: FDA-Public Use
  Company Number: 2010US003969

PATIENT
  Age: 65 Year
  Sex: Female
  Weight: 78 kg

DRUGS (2)
  1. PROGRAF [Suspect]
     Indication: RENAL TRANSPLANT
     Dosage: 4 MG, BID, ORAL
     Route: 048
     Dates: start: 20080828, end: 20100722
  2. MYFORTIC (MYCOPHENOLATE MOFETIL) TABLET [Concomitant]

REACTIONS (4)
  - DYSPNOEA [None]
  - GAIT DISTURBANCE [None]
  - VASCULAR OCCLUSION [None]
  - VERTIGO [None]
